FAERS Safety Report 7725447-7 (Version None)
Quarter: 2011Q3

REPORT INFORMATION
  Report Type: 
  Country: None (occurrence: None)
  Receive Date: 20110902
  Receipt Date: 20110831
  Transmission Date: 20111222
  Serious: Yes (Other)
  Sender: FDA-Public Use
  Company Number: US-BAYER-2011-080018

PATIENT
  Age: 59 Year
  Sex: Male

DRUGS (2)
  1. ANALGESICS [Concomitant]
  2. NEXAVAR [Suspect]
     Indication: HEPATIC NEOPLASM MALIGNANT
     Dosage: 400 MG, BID
     Dates: start: 20110801

REACTIONS (6)
  - CONSTIPATION [None]
  - PARAESTHESIA [None]
  - APHAGIA [None]
  - HEADACHE [None]
  - HYPOAESTHESIA [None]
  - ASTHENIA [None]
